FAERS Safety Report 12047915 (Version 9)
Quarter: 2022Q3

REPORT INFORMATION
  Report Type: Report from Study
  Country: FR (occurrence: FR)
  Receive Date: 20160208
  Receipt Date: 20220809
  Transmission Date: 20221027
  Serious: Yes (Life-Threatening, Hospitalization, Other)
  Sender: FDA-Public Use
  Company Number: FR-BRISTOL-MYERS SQUIBB COMPANY-BMS-2016-007960

PATIENT
  Age: 62 Year
  Sex: Male
  Weight: 112 kg

DRUGS (12)
  1. APIXABAN [Suspect]
     Active Substance: APIXABAN
     Indication: Cerebrovascular accident prophylaxis
     Dosage: 230 MILLIGRAM. TOTAL
     Route: 048
     Dates: start: 20151222
  2. APIXABAN [Suspect]
     Active Substance: APIXABAN
     Dosage: 230 MILLIGRAM, (PRESUMED INGESTED DOSE 23 X 10 MG(230 MG)
     Route: 048
  3. ACETAMINOPHEN [Suspect]
     Active Substance: ACETAMINOPHEN
     Indication: Poisoning
     Dosage: 4 GRAM, TOTAL
     Route: 048
     Dates: start: 20151222
  4. BISOPROLOL [Suspect]
     Active Substance: BISOPROLOL
     Indication: Product used for unknown indication
     Route: 048
  5. ESIDREX [Suspect]
     Active Substance: HYDROCHLOROTHIAZIDE
     Indication: Poisoning
     Dosage: 750 MILLIGRAM, TOTAL
     Route: 048
     Dates: start: 20151222
  6. CLOMIPRAMINE HYDROCHLORIDE [Suspect]
     Active Substance: CLOMIPRAMINE HYDROCHLORIDE
     Indication: Poisoning
     Dosage: 600 MILLIGRAM, TOTAL
     Route: 048
     Dates: start: 20151222
  7. TAHOR [Suspect]
     Active Substance: ATORVASTATIN CALCIUM
     Indication: Poisoning
     Dosage: 400 MILLIGRAM, TOTAL
     Route: 048
     Dates: start: 20151222
  8. POTASSIUM CHLORIDE [Suspect]
     Active Substance: POTASSIUM CHLORIDE
     Indication: Poisoning
     Dosage: 20 MILLIGRAM, TOTAL
     Route: 048
     Dates: start: 20151222
  9. AMLODIPINE [Suspect]
     Active Substance: AMLODIPINE BESYLATE
     Indication: Poisoning
     Dosage: 100 MILLIGRAM, TOTAL
     Route: 048
     Dates: start: 20151222
  10. POTASSIUM [Suspect]
     Active Substance: POTASSIUM
     Indication: Product used for unknown indication
     Route: 048
  11. HYDROCHLOROTHIAZIDE [Suspect]
     Active Substance: HYDROCHLOROTHIAZIDE
     Indication: Product used for unknown indication
     Route: 048
  12. ATORVASTATIN [Suspect]
     Active Substance: ATORVASTATIN
     Indication: Product used for unknown indication
     Route: 065

REACTIONS (8)
  - Drug level increased [Recovered/Resolved]
  - Poisoning deliberate [Unknown]
  - Cardiogenic shock [Recovered/Resolved]
  - Hypokalaemia [Recovered/Resolved]
  - Intentional overdose [Unknown]
  - Hypovolaemic shock [Unknown]
  - Toxicity to various agents [Recovered/Resolved]
  - Drug interaction [Unknown]

NARRATIVE: CASE EVENT DATE: 20151222
